FAERS Safety Report 11284204 (Version 7)
Quarter: 2016Q1

REPORT INFORMATION
  Report Type: Spontaneous
  Country: US (occurrence: US)
  Receive Date: 20150720
  Receipt Date: 20160121
  Transmission Date: 20160525
  Serious: Yes (Other)
  Sender: FDA-Public Use
  Company Number: US-PURDUE-USA-2015-0124758

PATIENT
  Age: 54 Year
  Sex: Male
  Weight: 70.3 kg

DRUGS (7)
  1. OXYCONTIN [Suspect]
     Active Substance: OXYCODONE HYDROCHLORIDE
     Indication: BACK PAIN
     Dosage: 30 MG, Q8H
     Route: 048
     Dates: start: 20150607
  2. OXYCONTIN [Suspect]
     Active Substance: OXYCODONE HYDROCHLORIDE
     Dosage: 30 MG, UNK
     Route: 048
     Dates: start: 201504
  3. MOBIC [Concomitant]
     Active Substance: MELOXICAM
     Indication: PRODUCT USED FOR UNKNOWN INDICATION
     Route: 065
  4. OXYCONTIN [Suspect]
     Active Substance: OXYCODONE HYDROCHLORIDE
     Dosage: 30 MG, UNK
     Route: 048
     Dates: start: 201502
  5. ADVIL [Concomitant]
     Active Substance: IBUPROFEN
     Indication: PRODUCT USED FOR UNKNOWN INDICATION
     Route: 048
  6. OXYCONTIN [Suspect]
     Active Substance: OXYCODONE HYDROCHLORIDE
     Indication: PAIN
     Dosage: 30 MG, Q8H
     Route: 048
     Dates: start: 201506
  7. VALIUM [Concomitant]
     Active Substance: DIAZEPAM
     Indication: PRODUCT USED FOR UNKNOWN INDICATION
     Route: 048

REACTIONS (29)
  - Gastrointestinal haemorrhage [Not Recovered/Not Resolved]
  - Hypophagia [Unknown]
  - Pain [Unknown]
  - Regurgitation [Unknown]
  - Weight decreased [Not Recovered/Not Resolved]
  - Tremor [Unknown]
  - Drug ineffective [Not Recovered/Not Resolved]
  - Decreased appetite [Not Recovered/Not Resolved]
  - Bowel movement irregularity [Unknown]
  - Hypertension [Unknown]
  - Constipation [Recovered/Resolved]
  - Drug effect decreased [Unknown]
  - Mental impairment [Unknown]
  - Insomnia [Unknown]
  - Defaecation urgency [Unknown]
  - Drug withdrawal syndrome [Unknown]
  - General physical health deterioration [Unknown]
  - Dysgeusia [Unknown]
  - Product physical issue [Unknown]
  - Malaise [Unknown]
  - Feeling abnormal [Unknown]
  - Breakthrough pain [Unknown]
  - Hyperhidrosis [Unknown]
  - Migraine [Not Recovered/Not Resolved]
  - Suspected counterfeit product [Unknown]
  - Headache [Unknown]
  - Product taste abnormal [Unknown]
  - Somnolence [Unknown]
  - Micturition urgency [Unknown]

NARRATIVE: CASE EVENT DATE: 201505
